FAERS Safety Report 16710166 (Version 1)
Quarter: 2019Q3

REPORT INFORMATION
  Report Type: Spontaneous
  Country: AR (occurrence: AR)
  Receive Date: 20190816
  Receipt Date: 20190816
  Transmission Date: 20191004
  Serious: Yes (Death, Hospitalization)
  Sender: FDA-Public Use
  Company Number: AR-PFIZER INC-2019350751

PATIENT
  Age: 98 Year
  Sex: Female

DRUGS (1)
  1. PREGABALIN. [Suspect]
     Active Substance: PREGABALIN
     Dosage: 50 MG, UNK
     Dates: start: 20181109

REACTIONS (3)
  - Hip fracture [Unknown]
  - Aspiration [Fatal]
  - Fall [Unknown]
